FAERS Safety Report 11076715 (Version 2)
Quarter: 2015Q2

REPORT INFORMATION
  Report Type: Report from Study
  Country: US (occurrence: US)
  Receive Date: 20150429
  Receipt Date: 20150623
  Transmission Date: 20150821
  Serious: Yes (Hospitalization, Other)
  Sender: FDA-Public Use
  Company Number: US-ACTELION-A-NJ2015-116895

PATIENT
  Age: 41 Year
  Sex: Female

DRUGS (5)
  1. TRACLEER [Suspect]
     Active Substance: BOSENTAN\BOSENTAN MONOHYDRATE
     Indication: PULMONARY ARTERIAL HYPERTENSION
     Dosage: UNK UNK, UNK
     Route: 048
  2. ADCIRCA [Concomitant]
     Active Substance: TADALAFIL
  3. REMODULIN [Suspect]
     Active Substance: TREPROSTINIL
     Indication: PRODUCT USED FOR UNKNOWN INDICATION
     Dosage: UNK UNK, UNK
     Route: 042
  4. COUMADIN [Concomitant]
     Active Substance: WARFARIN SODIUM
  5. TYVASO [Suspect]
     Active Substance: TREPROSTINIL
     Indication: PRODUCT USED FOR UNKNOWN INDICATION
     Dosage: UNK UNK, UNK
     Route: 055

REACTIONS (17)
  - Pain [Unknown]
  - Eye infection [Unknown]
  - Hypersensitivity [Unknown]
  - Hypotension [Unknown]
  - Headache [Unknown]
  - Eyelid margin crusting [Unknown]
  - Seizure [Unknown]
  - Diarrhoea [Unknown]
  - Flushing [Unknown]
  - Pneumonia [Unknown]
  - Loss of consciousness [Unknown]
  - Ocular hyperaemia [Unknown]
  - Cough [Unknown]
  - Crying [Unknown]
  - Pain in jaw [Unknown]
  - Abdominal discomfort [Unknown]
  - Lacrimation increased [Unknown]

NARRATIVE: CASE EVENT DATE: 20150605
